FAERS Safety Report 14072552 (Version 1)
Quarter: 2017Q4

REPORT INFORMATION
  Report Type: Spontaneous
  Country: US (occurrence: None)
  Receive Date: 20171011
  Receipt Date: 20171011
  Transmission Date: 20180321
  Serious: Yes (Hospitalization)
  Sender: FDA-Public Use
  Company Number: None

PATIENT
  Age: 65 Year
  Sex: Male
  Weight: 62.1 kg

DRUGS (1)
  1. DEXAMETHASONE. [Suspect]
     Active Substance: DEXAMETHASONE
     Dates: end: 20170919

REACTIONS (9)
  - Rib fracture [None]
  - Mobility decreased [None]
  - Rhabdomyolysis [None]
  - Cellulitis [None]
  - Mental status changes [None]
  - Confusional state [None]
  - Asthenia [None]
  - Seizure [None]
  - Pain [None]

NARRATIVE: CASE EVENT DATE: 20170920
